FAERS Safety Report 9652110 (Version 2)
Quarter: 2013Q4

REPORT INFORMATION
  Report Type: Spontaneous
  Country: FR (occurrence: None)
  Receive Date: 20131025
  Receipt Date: 20131119
  Transmission Date: 20140711
  Serious: No
  Sender: FDA-Public Use
  Company Number: 2013AP009153

PATIENT
  Age: 14 Year
  Sex: 0
  Weight: 40 kg

DRUGS (3)
  1. FERRIPROX [Suspect]
     Indication: NEURODEGENERATIVE DISORDER
     Route: 048
     Dates: start: 20101020, end: 20131010
  2. SINEMET [Concomitant]
  3. XENAZINE [Concomitant]

REACTIONS (1)
  - Reticulocyte count decreased [None]
